FAERS Safety Report 4667389-X (Version None)
Quarter: 2005Q2

REPORT INFORMATION
  Report Type: 
  Country: None (occurrence: None)
  Receive Date: 20050520
  Receipt Date: 20041022
  Transmission Date: 20051028
  Serious: Yes (Other)
  Sender: FDA-Public Use
  Company Number: PHEH2004US11413

PATIENT
  Age: 53 Year
  Sex: Female
  Weight: 73 kg

DRUGS (4)
  1. ZOMETA [Suspect]
     Indication: BREAST CANCER METASTATIC
     Dosage: 4MG Q4W
  2. TAXOTERE [Concomitant]
  3. HERCEPTIN [Concomitant]
  4. ARANESP [Concomitant]

REACTIONS (9)
  - BONE DISORDER [None]
  - DENTAL TREATMENT [None]
  - ENDODONTIC PROCEDURE [None]
  - GINGIVAL PAIN [None]
  - JAW DISORDER [None]
  - MUCOSAL INFLAMMATION [None]
  - ORAL PAIN [None]
  - OSTEONECROSIS [None]
  - STOMATITIS [None]
